FAERS Safety Report 16078449 (Version 2)
Quarter: 2019Q1

REPORT INFORMATION
  Report Type: Spontaneous
  Country: CH (occurrence: CH)
  Receive Date: 20190315
  Receipt Date: 20190327
  Transmission Date: 20190418
  Serious: Yes (Other)
  Sender: FDA-Public Use
  Company Number: CH-PFIZER INC-2019112181

PATIENT
  Age: 40 Year
  Sex: Female

DRUGS (3)
  1. TEMESTA (LORAZEPAM) [Suspect]
     Active Substance: LORAZEPAM
     Dosage: 125 MG, UNK
  2. ANAFRANIL [Suspect]
     Active Substance: CLOMIPRAMINE HYDROCHLORIDE
     Dosage: 8625 G, UNK
  3. MOTILIUM [Suspect]
     Active Substance: DOMPERIDONE
     Dosage: 160 MG, UNK

REACTIONS (5)
  - Coma [Unknown]
  - Overdose [Unknown]
  - Respiratory acidosis [Unknown]
  - Bezoar [Unknown]
  - Bezoar [None]
